FAERS Safety Report 4505500-1 (Version None)
Quarter: 2004Q4

REPORT INFORMATION
  Report Type: 
  Country: None (occurrence: None)
  Receive Date: 20041119
  Receipt Date: 20041110
  Transmission Date: 20050328
  Serious: Yes (Death, Hospitalization)
  Sender: FDA-Public Use
  Company Number: SE-ROCHE-385926

PATIENT
  Age: 60 Year
  Sex: Female
  Weight: 67 kg

DRUGS (6)
  1. XELODA [Suspect]
     Indication: DRUG USE FOR UNKNOWN INDICATION
     Route: 065
  2. ACETAMINOPHEN [Concomitant]
     Route: 048
  3. TRAMADOL [Concomitant]
     Route: 048
  4. UNKNOWN [Concomitant]
     Route: 048
  5. DEXAMETHASONE [Concomitant]
     Route: 048
  6. WARFARIN SODIUM [Concomitant]
     Route: 048

REACTIONS (6)
  - HYPERGLYCAEMIA [None]
  - LEUKOPENIA [None]
  - MUCOSAL INFLAMMATION [None]
  - PALMAR-PLANTAR ERYTHRODYSAESTHESIA SYNDROME [None]
  - SEPSIS [None]
  - THROMBOCYTOPENIA [None]
